FAERS Safety Report 13040346 (Version 2)
Quarter: 2017Q1

REPORT INFORMATION
  Report Type: Spontaneous
  Country: US (occurrence: US)
  Receive Date: 20161219
  Receipt Date: 20170310
  Transmission Date: 20170428
  Serious: Yes (Other)
  Sender: FDA-Public Use
  Company Number: US-BAYER-2016-239563

PATIENT
  Sex: Female

DRUGS (30)
  1. CIPRO [Suspect]
     Active Substance: CIPROFLOXACIN HYDROCHLORIDE
     Indication: INFECTION
     Dosage: 1000 MG, QD
     Dates: start: 20060308, end: 20060318
  2. GABAPENTIN. [Concomitant]
     Active Substance: GABAPENTIN
     Indication: PAIN MANAGEMENT
     Dosage: UNK
     Dates: start: 2007
  3. NORCO [Concomitant]
     Active Substance: ACETAMINOPHEN\HYDROCODONE BITARTRATE
     Indication: PAIN MANAGEMENT
     Dosage: 352 MG, QD
     Dates: start: 2007
  4. PREDNISONE. [Concomitant]
     Active Substance: PREDNISONE
     Dosage: UNK
     Dates: start: 2007
  5. LEVAQUIN [Suspect]
     Active Substance: LEVOFLOXACIN
     Indication: INFECTION
     Dosage: 500 MG, QD
     Dates: start: 20081225, end: 20090104
  6. AVELOX [Suspect]
     Active Substance: MOXIFLOXACIN HYDROCHLORIDE
     Indication: INFECTION
     Dosage: 400 MG, QD
     Dates: start: 20100823, end: 20100830
  7. LEVAQUIN [Suspect]
     Active Substance: LEVOFLOXACIN
     Indication: INFECTION
     Dosage: 500 MG, QD
     Dates: start: 20050107, end: 20050117
  8. LEVALBUTEROL. [Concomitant]
     Active Substance: LEVALBUTEROL
     Indication: CHRONIC OBSTRUCTIVE PULMONARY DISEASE
     Dosage: 45MCG/2 SPRAYS DAILY
  9. MESALAMINE. [Concomitant]
     Active Substance: MESALAMINE
     Indication: CROHN^S DISEASE
     Dosage: 500 MG, QID
  10. SILVER NITRATE. [Concomitant]
     Active Substance: SILVER NITRATE
     Indication: ILEOSTOMY
     Dosage: 75%-25%/ 1X DAILY
     Route: 061
  11. SINGULAIR [Concomitant]
     Active Substance: MONTELUKAST SODIUM
     Indication: MULTIPLE ALLERGIES
     Dosage: 10 MG, QD
  12. FLUTICASONE. [Concomitant]
     Active Substance: FLUTICASONE
     Indication: MULTIPLE ALLERGIES
     Dosage: 500 MCG/24HR, UNK
  13. CLONAZEPAM. [Concomitant]
     Active Substance: CLONAZEPAM
     Indication: ANXIETY
     Dosage: UNK
     Dates: start: 2015
  14. POTASSIUM CHLORIDE. [Concomitant]
     Active Substance: POTASSIUM CHLORIDE
     Dosage: 10 MG, BID
  15. CLONAZEPAM. [Concomitant]
     Active Substance: CLONAZEPAM
     Indication: PANIC ATTACK
     Dosage: 0.5 MG, UNK
  16. AVELOX [Suspect]
     Active Substance: MOXIFLOXACIN HYDROCHLORIDE
     Indication: INFECTION
     Dosage: 400 MG, QD
     Dates: start: 20101004, end: 20101011
  17. LEVAQUIN [Suspect]
     Active Substance: LEVOFLOXACIN
     Indication: INFECTION
     Dosage: 500 MG, QD
     Dates: start: 20050324, end: 20050329
  18. DIPHENOXYLATE/ATROPINE [ATROPINE SULFATE,DIPHENOXYLATE HYDROCHLORI [Concomitant]
     Indication: DIARRHOEA
     Dosage: 2.5MG-0.025MG/2XDAILY
  19. FERROUS SULFATE. [Concomitant]
     Active Substance: FERROUS SULFATE
     Indication: IRON DEFICIENCY
     Dosage: 325 MG, QD
  20. UREA. [Concomitant]
     Active Substance: UREA
     Indication: RASH
     Dosage: 40 %, QD
     Route: 061
  21. LEVAQUIN [Suspect]
     Active Substance: LEVOFLOXACIN
     Indication: INFECTION
     Dosage: 500 MG, QD
     Dates: start: 20100108, end: 20100115
  22. ZOFRAN [Concomitant]
     Active Substance: ONDANSETRON HYDROCHLORIDE
     Indication: NAUSEA
     Dosage: 4 MG, QD
  23. PANTOPRAZOLE [Concomitant]
     Active Substance: PANTOPRAZOLE SODIUM
     Indication: GASTROOESOPHAGEAL REFLUX DISEASE
     Dosage: 40 MG, QD
  24. LEVAQUIN [Suspect]
     Active Substance: LEVOFLOXACIN
     Indication: INFECTION
     Dosage: 500 MG, QD
     Dates: start: 20060508, end: 20060518
  25. LEVAQUIN [Suspect]
     Active Substance: LEVOFLOXACIN
     Indication: INFECTION
     Dosage: 500 MG, QD
     Dates: start: 20070226, end: 20070308
  26. XOPENEX [Concomitant]
     Active Substance: LEVALBUTEROL HYDROCHLORIDE
     Indication: CHRONIC OBSTRUCTIVE PULMONARY DISEASE
     Dosage: 0.63MG/3ML
     Route: 055
  27. ADVAIR DISKUS [Concomitant]
     Active Substance: FLUTICASONE PROPIONATE\SALMETEROL XINAFOATE
     Indication: CHRONIC OBSTRUCTIVE PULMONARY DISEASE
     Dosage: 100MCG-50MCG/ 1 BLISTER
     Route: 055
  28. DILTIAZEM. [Concomitant]
     Active Substance: DILTIAZEM
     Indication: HYPERTENSION
     Dosage: 120 MG, QD
     Dates: start: 2007
  29. VITAMIN B12 [Concomitant]
     Active Substance: CYANOCOBALAMIN
     Indication: HYPOVITAMINOSIS
     Dosage: UNK
     Dates: start: 2007
  30. AVELOX [Suspect]
     Active Substance: MOXIFLOXACIN HYDROCHLORIDE
     Indication: INFECTION
     Dosage: 400 MG, QD
     Dates: start: 20120523, end: 20120528

REACTIONS (6)
  - Injury [None]
  - Pain [None]
  - Physical disability [None]
  - Neuropathy peripheral [Not Recovered/Not Resolved]
  - Emotional distress [None]
  - Economic problem [None]

NARRATIVE: CASE EVENT DATE: 2005
